FAERS Safety Report 9098120 (Version 6)
Quarter: 2014Q1

REPORT INFORMATION
  Report Type: Spontaneous
  Country: US (occurrence: US)
  Receive Date: 20130213
  Receipt Date: 20140321
  Transmission Date: 20141002
  Serious: Yes (Hospitalization, Other)
  Sender: FDA-Public Use
  Company Number: US-009507513-1302USA005598

PATIENT
  Sex: Female
  Weight: 63.49 kg

DRUGS (14)
  1. ALENDRONATE SODIUM [Suspect]
     Indication: OSTEOPOROSIS
  2. BONIVA [Suspect]
     Indication: BONE LOSS
     Dosage: 150 MG, UNK
     Route: 048
     Dates: start: 200609, end: 20100310
  3. BONIVA [Suspect]
     Indication: OSTEOPOROSIS
  4. FORTICAL (CALCIUM CARBONATE) [Concomitant]
     Indication: OSTEOPOROSIS
     Dosage: UNK
     Dates: start: 20080828, end: 20090812
  5. VITAMINS (UNSPECIFIED) [Concomitant]
     Dosage: 1 DF, QD
     Dates: start: 1998
  6. VITAMIN D (UNSPECIFIED) [Concomitant]
     Dosage: 1000 IU, QD
     Dates: start: 1998
  7. MAGNESIUM (UNSPECIFIED) [Concomitant]
     Dosage: 1 DF, QD
     Dates: start: 1998
  8. ZINC (UNSPECIFIED) [Concomitant]
     Dosage: 1 DF, QD
     Dates: start: 1998
  9. ASTELIN (AZELASTINE HYDROCHLORIDE) [Concomitant]
     Indication: HYPERSENSITIVITY
     Dosage: UNK
     Dates: start: 20081030, end: 20090523
  10. NASONEX [Concomitant]
     Indication: HYPERSENSITIVITY
     Dosage: UNK
     Dates: start: 20080828
  11. PROMETHAZINE [Concomitant]
     Indication: HYPERSENSITIVITY
     Dosage: UNK
     Dates: start: 20090925
  12. FOSAMAX [Suspect]
     Indication: BONE LOSS
     Dosage: 5 MG, UNK
     Route: 048
     Dates: start: 1999
  13. FOSAMAX [Suspect]
     Indication: OSTEOPOROSIS
     Dosage: 70 MG, UNK
     Route: 048
  14. ALENDRONATE SODIUM [Suspect]
     Indication: BONE LOSS
     Dosage: 70 MG, UNK
     Route: 048
     Dates: start: 20100511, end: 201104

REACTIONS (33)
  - Intramedullary rod insertion [Unknown]
  - Bone graft [Unknown]
  - Anaemia postoperative [Recovering/Resolving]
  - Rotator cuff repair [Unknown]
  - Low turnover osteopathy [Unknown]
  - Depression [Unknown]
  - Hypertension [Unknown]
  - Anxiety [Unknown]
  - Depression [Unknown]
  - Infection [Unknown]
  - Cough [Unknown]
  - Infection [Unknown]
  - Infection [Unknown]
  - Asthma [Unknown]
  - Pain [Unknown]
  - Pain [Unknown]
  - Prophylaxis [Unknown]
  - Foot fracture [Unknown]
  - Arthroscopy [Unknown]
  - Rotator cuff syndrome [Unknown]
  - Blood potassium decreased [Unknown]
  - Osteopenia [Unknown]
  - Insomnia [Unknown]
  - Blood cholesterol increased [Unknown]
  - Tonsillectomy [Unknown]
  - Osteoarthritis [Unknown]
  - Synovitis [Unknown]
  - Asthenia [Unknown]
  - Nausea [Unknown]
  - Gastrooesophageal reflux disease [Unknown]
  - Arthralgia [Not Recovered/Not Resolved]
  - Joint swelling [Unknown]
  - Femur fracture [Unknown]
